FAERS Safety Report 21213839 (Version 1)
Quarter: 2022Q3

REPORT INFORMATION
  Report Type: Spontaneous
  Country: SE (occurrence: SE)
  Receive Date: 20220816
  Receipt Date: 20220816
  Transmission Date: 20221027
  Serious: Yes (Death, Other)
  Sender: FDA-Public Use
  Company Number: SE-SA-SAC20210519001346

PATIENT

DRUGS (3)
  1. LAMOTRIGINE [Suspect]
     Active Substance: LAMOTRIGINE
     Indication: Product used for unknown indication
     Dosage: DURING PREGNANCY
     Route: 064
  2. CLOBAZAM [Suspect]
     Active Substance: CLOBAZAM
     Indication: Product used for unknown indication
     Dosage: 20 MILLIGRAM, ONCE A DAY (DURING 1ST TRIMESTER OF PREGNANCY)
     Route: 064
  3. CLOBAZAM [Suspect]
     Active Substance: CLOBAZAM
     Dosage: DURING SECOND AND THIRD TRIMESTER OF PREGNANCY
     Route: 064

REACTIONS (2)
  - Death neonatal [Fatal]
  - Exposure during pregnancy [Fatal]
